FAERS Safety Report 5483016-6 (Version None)
Quarter: 2007Q4

REPORT INFORMATION
  Report Type: 
  Country: None (occurrence: None)
  Receive Date: 20071011
  Receipt Date: 20070928
  Transmission Date: 20080405
  Serious: Yes (Hospitalization)
  Sender: FDA-Public Use
  Company Number: FR-SHR-FR-2006-001818

PATIENT
  Age: 30 Year
  Sex: Male

DRUGS (5)
  1. BETAFERON [Suspect]
     Indication: RELAPSING-REMITTING MULTIPLE SCLEROSIS
     Dosage: 16 MIU, EVERY 2D
     Route: 058
     Dates: start: 20040603
  2. IBUPROFEN [Concomitant]
     Dosage: 400 MG, UNK
     Route: 048
     Dates: start: 20050501
  3. YOHIMBINE [Concomitant]
     Indication: MULTIPLE SCLEROSIS
     Dosage: 5 MG, DAILY
     Route: 048
     Dates: start: 20051120
  4. GUARANA [Concomitant]
     Indication: MULTIPLE SCLEROSIS
     Dosage: 50 DROPS, 3X/DAY
     Route: 048
     Dates: start: 20051120
  5. LYCOPODIUM [Concomitant]
     Indication: MULTIPLE SCLEROSIS
     Dosage: 5 GRANULS, 3X/DAY
     Route: 048
     Dates: start: 20051120

REACTIONS (3)
  - HEAD INJURY [None]
  - SYNCOPE [None]
  - VERTIGO POSITIONAL [None]
